FAERS Safety Report 9272748 (Version 1)
Quarter: 2013Q2

REPORT INFORMATION
  Report Type: Spontaneous
  Country: IT (occurrence: IT)
  Receive Date: 20130506
  Receipt Date: 20130506
  Transmission Date: 20140414
  Serious: Yes (Other)
  Sender: FDA-Public Use
  Company Number: IT-PFIZER INC-2013140927

PATIENT
  Age: 13 Year
  Sex: Female

DRUGS (1)
  1. SUTENT [Suspect]
     Indication: METASTATIC RENAL CELL CARCINOMA
     Dosage: UNK
     Route: 048
     Dates: start: 201108

REACTIONS (6)
  - Hypertensive crisis [Unknown]
  - Hypothyroidism [Unknown]
  - Proteinuria [Unknown]
  - Oedema [Unknown]
  - Disease progression [Unknown]
  - Metastatic renal cell carcinoma [Unknown]
